FAERS Safety Report 9004924 (Version 1)
Quarter: 2012Q4

REPORT INFORMATION
  Report Type: Spontaneous
  Country: FR (occurrence: None)
  Receive Date: 20121227
  Receipt Date: 20121227
  Transmission Date: 20130627
  Serious: Yes (Other)
  Sender: FDA-Public Use
  Company Number: FR-CLINIGEN HEALTHCARE LIMITED-003021

PATIENT
  Age: 50 Year
  Sex: Female

DRUGS (2)
  1. FOSCAVIR [Suspect]
  2. GANCICLOVIR [Concomitant]

REACTIONS (1)
  - Hippocampal sclerosis [None]
